FAERS Safety Report 16917859 (Version 1)
Quarter: 2019Q4

REPORT INFORMATION
  Report Type: Spontaneous
  Country: GB (occurrence: GB)
  Receive Date: 20191015
  Receipt Date: 20191015
  Transmission Date: 20200122
  Serious: Yes (Other)
  Sender: FDA-Public Use
  Company Number: GB-TEVA-2019-GB-1120788

PATIENT
  Age: 83 Year
  Sex: Female

DRUGS (10)
  1. SERTRALINE [Suspect]
     Active Substance: SERTRALINE HYDROCHLORIDE
     Route: 065
  2. AMLODIPINE [Concomitant]
     Active Substance: AMLODIPINE BESYLATE
  3. LUMIGAN [Concomitant]
     Active Substance: BIMATOPROST
     Dosage: 300MCG/ML
  4. PREDNISOLONE. [Suspect]
     Active Substance: PREDNISOLONE
     Route: 048
  5. LANSOPRAZOLE. [Concomitant]
     Active Substance: LANSOPRAZOLE
  6. PARACETAMOL [Concomitant]
     Active Substance: ACETAMINOPHEN
  7. SALBUTAMOL [Concomitant]
     Active Substance: ALBUTEROL
  8. IBUPROFEN. [Concomitant]
     Active Substance: IBUPROFEN
  9. NITROFURANTOIN. [Concomitant]
     Active Substance: NITROFURANTOIN
  10. MEMANTINE. [Concomitant]
     Active Substance: MEMANTINE

REACTIONS (2)
  - Hallucination [Recovering/Resolving]
  - Confusional state [Unknown]
